FAERS Safety Report 7465592-7 (Version None)
Quarter: 2011Q1

REPORT INFORMATION
  Report Type: 
  Country: None (occurrence: None)
  Receive Date: 20110302
  Receipt Date: 20100902
  Transmission Date: 20110831
  Serious: Yes (Hospitalization, Other)
  Sender: FDA-Public Use
  Company Number: 163-21880-10080477

PATIENT
  Age: 89 Year
  Sex: Male

DRUGS (1)
  1. REVLIMID [Suspect]
     Indication: MULTIPLE MYELOMA
     Dosage: 10 MG, 3X WEEK A WEEK AFTER DIALYSIS, PO
     Route: 048
     Dates: start: 20100603

REACTIONS (2)
  - DIVERTICULITIS [None]
  - MEDICAL DEVICE COMPLICATION [None]
